FAERS Safety Report 16059624 (Version 1)
Quarter: 2019Q1

REPORT INFORMATION
  Report Type: Report from Study
  Country: IT (occurrence: IT)
  Receive Date: 20190311
  Receipt Date: 20190311
  Transmission Date: 20190418
  Serious: Yes (Other)
  Sender: FDA-Public Use
  Company Number: IT-GILEAD-2019-0395029

PATIENT
  Sex: Male

DRUGS (2)
  1. DACLATASVIR. [Concomitant]
     Active Substance: DACLATASVIR
     Indication: CHRONIC HEPATITIS C
  2. SOFOSBUVIR [Suspect]
     Active Substance: SOFOSBUVIR
     Indication: CHRONIC HEPATITIS C
     Route: 065

REACTIONS (1)
  - Genotype drug resistance test positive [Not Recovered/Not Resolved]
